FAERS Safety Report 8553119-8 (Version None)
Quarter: 2012Q3

REPORT INFORMATION
  Report Type: 
  Country: None (occurrence: None)
  Receive Date: 20120731
  Receipt Date: 20120724
  Transmission Date: 20120928
  Serious: Yes (Other)
  Sender: FDA-Public Use
  Company Number: FI-SANOFI-AVENTIS-2012SA053010

PATIENT
  Age: 35 Year
  Sex: Male

DRUGS (3)
  1. KEFEXIN [Concomitant]
  2. FLAVAMED [Interacting]
     Route: 065
  3. FEXOFENADINE HCL [Suspect]
     Route: 048
     Dates: start: 20120529, end: 20120529

REACTIONS (4)
  - MALAISE [None]
  - ANAPHYLACTIC SHOCK [None]
  - DRUG INTERACTION [None]
  - ARRHYTHMIA [None]
